FAERS Safety Report 5332952-X (Version None)
Quarter: 2007Q1

REPORT INFORMATION
  Report Type: 
  Country: None (occurrence: None)
  Receive Date: 20070306
  Receipt Date: 20060807
  Transmission Date: 20070707
  Serious: Yes (Hospitalization)
  Sender: FDA-Public Use
  Company Number: A03200604982

PATIENT
  Age: 78 Year
  Sex: Female

DRUGS (4)
  1. PLAVIX [Suspect]
     Indication: MYOCARDIAL INFARCTION
     Dosage: 75 MG QD - ORAL
     Route: 048
     Dates: start: 20060603, end: 20060727
  2. ATORVASTATIN [Concomitant]
  3. CELECOXIB [Concomitant]
  4. RALOXIFENE HCL [Concomitant]

REACTIONS (5)
  - ASTHENIA [None]
  - BLOOD URINE PRESENT [None]
  - CONTUSION [None]
  - PYREXIA [None]
  - THROMBOSIS [None]
